FAERS Safety Report 10863310 (Version 1)
Quarter: 2015Q1

REPORT INFORMATION
  Report Type: Spontaneous
  Country: US (occurrence: US)
  Receive Date: 20150223
  Receipt Date: 20150223
  Transmission Date: 20150721
  Serious: No
  Sender: FDA-Public Use
  Company Number: US-TARO-2014P1002409

PATIENT
  Age: 86 Year
  Sex: Male
  Weight: 64.86 kg

DRUGS (1)
  1. FLUOCINONIDE E CREAM USP 0.05% [Suspect]
     Active Substance: FLUOCINONIDE
     Indication: RASH
     Dosage: BID
     Route: 061
     Dates: start: 201309, end: 201309

REACTIONS (2)
  - Disorientation [Recovering/Resolving]
  - Feeling abnormal [Recovering/Resolving]

NARRATIVE: CASE EVENT DATE: 201309
